FAERS Safety Report 25655663 (Version 2)
Quarter: 2025Q3

REPORT INFORMATION
  Report Type: Spontaneous
  Country: JP (occurrence: JP)
  Receive Date: 20250807
  Receipt Date: 20250820
  Transmission Date: 20251021
  Serious: No
  Sender: BRISTOL-MYERS SQUIBB COMPANY
  Company Number: JP-TAIHO-2025-008074

PATIENT
  Age: 75 Year
  Sex: Female
  Weight: 43 kg

DRUGS (7)
  1. ABRAXANE [Suspect]
     Active Substance: PACLITAXEL
     Indication: Metastatic gastric cancer
     Dosage: DAILY DOSE: 140 MILLIGRAM(S)
     Route: 041
     Dates: start: 20210610, end: 20210812
  2. RAMUCIRUMAB [Suspect]
     Active Substance: RAMUCIRUMAB
     Indication: Metastatic gastric cancer
     Dosage: DAILY DOSE: 380 MILLIGRAM(S)
     Dates: end: 20210805
  3. PACLITAXEL [Suspect]
     Active Substance: PACLITAXEL
     Indication: Metastatic gastric cancer
     Dates: start: 20210603
  4. AMLODIPINE [Concomitant]
     Active Substance: AMLODIPINE BESYLATE
     Indication: Hypertension
     Route: 048
  5. LAFUTIDINE [Concomitant]
     Active Substance: LAFUTIDINE
     Indication: Gastric ulcer
     Route: 048
  6. OLMESARTAN [Concomitant]
     Active Substance: OLMESARTAN
     Indication: Hypertension
     Route: 048
  7. ADENINE [Concomitant]
     Active Substance: ADENINE
     Indication: Product used for unknown indication
     Route: 048

REACTIONS (2)
  - Disorientation [Recovering/Resolving]
  - Off label use [Unknown]

NARRATIVE: CASE EVENT DATE: 20210902
